FAERS Safety Report 13295650 (Version 2)
Quarter: 2017Q2

REPORT INFORMATION
  Report Type: Spontaneous
  Country: KR (occurrence: KR)
  Receive Date: 20170303
  Receipt Date: 20170613
  Transmission Date: 20170830
  Serious: No
  Sender: FDA-Public Use
  Company Number: KR-009507513-1703KOR000924

PATIENT
  Age: 23 Year
  Sex: Male
  Weight: 60.1 kg

DRUGS (67)
  1. DEXAMETHASONE SODIUM PHOSPHATE. [Concomitant]
     Active Substance: DEXAMETHASONE SODIUM PHOSPHATE
     Dosage: 5 MG, ONCE; STRENGTH: 5MG/ML
     Route: 042
     Dates: start: 20161122, end: 20161122
  2. DEXAMETHASONE. [Concomitant]
     Active Substance: DEXAMETHASONE
     Indication: PROPHYLAXIS OF NAUSEA AND VOMITING
     Dosage: 0.5 MG, QD
     Route: 048
     Dates: start: 20161109, end: 20161111
  3. DEXAMETHASONE. [Concomitant]
     Active Substance: DEXAMETHASONE
     Dosage: 0.5 MG, QD
     Route: 048
     Dates: start: 20161116
  4. DEXAMETHASONE. [Concomitant]
     Active Substance: DEXAMETHASONE
     Dosage: 0.5 MG, QD
     Route: 048
     Dates: start: 20161122, end: 20161124
  5. ALOXI [Concomitant]
     Active Substance: PALONOSETRON HYDROCHLORIDE
     Dosage: 0.25 MG, ONCE
     Route: 042
     Dates: start: 20161213, end: 20161213
  6. PLAKON [Concomitant]
     Dosage: 3 MG, ONCE; STRENGTH: 3MG/2ML
     Route: 030
     Dates: start: 20161122, end: 20161122
  7. MACPERAN [Concomitant]
     Active Substance: METOCLOPRAMIDE HYDROCHLORIDE
     Dosage: 1 TABLET, TID
     Route: 048
     Dates: start: 20161129, end: 20161203
  8. MACPERAN [Concomitant]
     Active Substance: METOCLOPRAMIDE HYDROCHLORIDE
     Dosage: 1 TABLET, TID
     Route: 048
     Dates: start: 20161206, end: 20161210
  9. NEO MEDICOUGH [Concomitant]
     Indication: PROPHYLAXIS
     Dosage: 1 TABLET, TID
     Route: 048
     Dates: start: 20161101
  10. PENIRAMIN [Concomitant]
     Indication: ALLERGY PROPHYLAXIS
     Dosage: 2 TABLETS (4 MG), QD
     Route: 048
     Dates: start: 20161101
  11. EMEND (FOSAPREPITANT DIMEGLUMINE) [Suspect]
     Active Substance: FOSAPREPITANT DIMEGLUMINE
     Dosage: 150 MG, ONCE
     Route: 042
     Dates: start: 20161122, end: 20161122
  12. TAXOL [Concomitant]
     Active Substance: PACLITAXEL
     Indication: LUNG NEOPLASM MALIGNANT
     Dosage: 102 MG, ONCE, CYCLE 1
     Route: 042
     Dates: start: 20161108, end: 20161108
  13. CISPLATIN. [Concomitant]
     Active Substance: CISPLATIN
     Indication: LUNG NEOPLASM MALIGNANT
     Dosage: 34 MG, ONCE, CYCLE 1
     Route: 042
     Dates: start: 20161108, end: 20161108
  14. DEXAMETHASONE. [Concomitant]
     Active Substance: DEXAMETHASONE
     Dosage: 0.5 MG, QD
     Route: 048
     Dates: start: 20161206, end: 20161209
  15. ALOXI [Concomitant]
     Active Substance: PALONOSETRON HYDROCHLORIDE
     Dosage: 0.25 MG, ONCE
     Route: 042
     Dates: start: 20161122, end: 20161122
  16. TAGAMET [Concomitant]
     Active Substance: CIMETIDINE
     Dosage: 200 MG, ONCE; STRENGTH: 200MG/2ML
     Route: 042
     Dates: start: 20161206, end: 20161206
  17. POTASSIUM CHLORIDE. [Concomitant]
     Active Substance: POTASSIUM CHLORIDE
     Dosage: 5 ML, BID
     Route: 042
     Dates: start: 20161115, end: 20161115
  18. POTASSIUM CHLORIDE. [Concomitant]
     Active Substance: POTASSIUM CHLORIDE
     Dosage: 5 ML, BID
     Route: 042
     Dates: start: 20161129, end: 20161129
  19. MAGNESIN (MAGNESIUM SULFATE) [Concomitant]
     Dosage: 5 ML, BID
     Route: 042
     Dates: start: 20161213, end: 20161213
  20. EMEND (FOSAPREPITANT DIMEGLUMINE) [Suspect]
     Active Substance: FOSAPREPITANT DIMEGLUMINE
     Indication: PROPHYLAXIS OF NAUSEA AND VOMITING
     Dosage: 150 MG, ONCE
     Route: 042
     Dates: start: 20161108, end: 20161108
  21. EMEND (FOSAPREPITANT DIMEGLUMINE) [Suspect]
     Active Substance: FOSAPREPITANT DIMEGLUMINE
     Dosage: 150 MG, ONCE
     Route: 042
     Dates: start: 20161213, end: 20161213
  22. TAXOL [Concomitant]
     Active Substance: PACLITAXEL
     Dosage: 102 MG, ONCE, CYCLE 2
     Route: 042
     Dates: start: 20161115, end: 20161115
  23. CISPLATIN. [Concomitant]
     Active Substance: CISPLATIN
     Dosage: 34 MG, ONCE, CYCLE 2
     Route: 042
     Dates: start: 20161115, end: 20161115
  24. ALOXI [Concomitant]
     Active Substance: PALONOSETRON HYDROCHLORIDE
     Dosage: 0.25 MG, ONCE
     Route: 042
     Dates: start: 20161206, end: 20161206
  25. PLAKON [Concomitant]
     Dosage: 3 MG, ONCE; STRENGTH: 3MG/2ML
     Route: 042
     Dates: start: 20161115, end: 20161115
  26. OXATIN [Concomitant]
     Indication: ALLERGY PROPHYLAXIS
     Dosage: 1 TABLET (30 MG), BID
     Route: 048
     Dates: start: 20161101
  27. MAGNESIN (MAGNESIUM SULFATE) [Concomitant]
     Indication: PROPHYLAXIS
     Dosage: 5 ML, BID
     Route: 042
     Dates: start: 20161108, end: 20161108
  28. MAGNESIN (MAGNESIUM SULFATE) [Concomitant]
     Dosage: 5 ML, BID
     Route: 042
     Dates: start: 20161115, end: 20161115
  29. EMEND (FOSAPREPITANT DIMEGLUMINE) [Suspect]
     Active Substance: FOSAPREPITANT DIMEGLUMINE
     Dosage: 150 MG, ONCE
     Route: 042
     Dates: start: 20161206, end: 20161206
  30. DEXAMETHASONE SODIUM PHOSPHATE. [Concomitant]
     Active Substance: DEXAMETHASONE SODIUM PHOSPHATE
     Indication: PROPHYLAXIS OF NAUSEA AND VOMITING
     Dosage: 5 MG, ONCE; STRENGTH: 5MG/ML
     Route: 042
     Dates: start: 20161108, end: 20161108
  31. ALOXI [Concomitant]
     Active Substance: PALONOSETRON HYDROCHLORIDE
     Indication: PROPHYLAXIS OF NAUSEA AND VOMITING
     Dosage: 5 ML, ONCE
     Route: 042
     Dates: start: 20161108, end: 20161108
  32. PLAKON [Concomitant]
     Dosage: 3 MG, ONCE; STRENGTH: 3MG/2ML
     Route: 030
     Dates: start: 20161129, end: 20161129
  33. TAGAMET [Concomitant]
     Active Substance: CIMETIDINE
     Dosage: 200 MG, ONCE; STRENGTH: 200MG/2ML
     Route: 042
     Dates: start: 20161213, end: 20161213
  34. EMEND (FOSAPREPITANT DIMEGLUMINE) [Suspect]
     Active Substance: FOSAPREPITANT DIMEGLUMINE
     Dosage: 150 MG, ONCE
     Route: 042
     Dates: start: 20161129, end: 20161129
  35. DEXAMETHASONE SODIUM PHOSPHATE. [Concomitant]
     Active Substance: DEXAMETHASONE SODIUM PHOSPHATE
     Dosage: 5 MG, ONCE; STRENGTH: 5MG/ML
     Route: 042
     Dates: start: 20161213, end: 20161213
  36. PLAKON [Concomitant]
     Dosage: 3 MG, BID; STRENGTH: 3MG/2ML
     Route: 030
     Dates: start: 20161108, end: 20161108
  37. PLAKON [Concomitant]
     Dosage: 3 MG, ONCE; STRENGTH: 3MG/2ML
     Route: 030
     Dates: start: 20161206, end: 20161206
  38. CODEIN [Concomitant]
     Active Substance: CODEINE
     Indication: CANCER PAIN
     Dosage: 1 TABLET (20 MG), TID
     Route: 048
     Dates: start: 20161108, end: 20161115
  39. MACPERAN [Concomitant]
     Active Substance: METOCLOPRAMIDE HYDROCHLORIDE
     Indication: PROPHYLAXIS AGAINST GASTROINTESTINAL ULCER
     Dosage: 1 TABLET, TID
     Route: 048
     Dates: start: 20161108, end: 20161112
  40. MACPERAN [Concomitant]
     Active Substance: METOCLOPRAMIDE HYDROCHLORIDE
     Dosage: 1 TABLET, TID
     Route: 048
     Dates: start: 20161115, end: 20161119
  41. POTASSIUM CHLORIDE. [Concomitant]
     Active Substance: POTASSIUM CHLORIDE
     Indication: PROPHYLAXIS
     Dosage: 5 ML, BID
     Route: 042
     Dates: start: 20161108, end: 20161108
  42. MAGNESIN (MAGNESIUM SULFATE) [Concomitant]
     Dosage: 5 ML, BID
     Route: 042
     Dates: start: 20161206, end: 20161206
  43. EMEND (FOSAPREPITANT DIMEGLUMINE) [Suspect]
     Active Substance: FOSAPREPITANT DIMEGLUMINE
     Dosage: 150 MG, ONCE
     Route: 042
     Dates: start: 20161115, end: 20161115
  44. DEXAMETHASONE SODIUM PHOSPHATE. [Concomitant]
     Active Substance: DEXAMETHASONE SODIUM PHOSPHATE
     Dosage: 5 MG, ONCE; STRENGTH: 5MG/ML
     Route: 042
     Dates: start: 20161129, end: 20161129
  45. DEXAMETHASONE SODIUM PHOSPHATE. [Concomitant]
     Active Substance: DEXAMETHASONE SODIUM PHOSPHATE
     Dosage: 5 MG, ONCE; STRENGTH: 5MG/ML
     Route: 042
     Dates: start: 20161206, end: 20161206
  46. ALOXI [Concomitant]
     Active Substance: PALONOSETRON HYDROCHLORIDE
     Dosage: 5 ML, ONCE
     Route: 042
     Dates: start: 20161115, end: 20161115
  47. PLAKON [Concomitant]
     Indication: ALLERGY PROPHYLAXIS
     Dosage: 3 MG, ONCE; STRENGTH: 3MG/2ML
     Route: 042
     Dates: start: 20161108, end: 20161108
  48. PLAKON [Concomitant]
     Dosage: 3 MG, ONCE; STRENGTH: 3MG/2ML
     Route: 030
     Dates: start: 20161115, end: 20161115
  49. TAGAMET [Concomitant]
     Active Substance: CIMETIDINE
     Indication: PROPHYLAXIS AGAINST GASTROINTESTINAL ULCER
     Dosage: 200 MG, ONCE; STRENGTH: 200MG/2ML
     Route: 042
     Dates: start: 20161115, end: 20161115
  50. CETIZAL [Concomitant]
     Indication: ALLERGY PROPHYLAXIS
     Dosage: 1 TABLET (5 MG), QD
     Route: 048
     Dates: start: 20161101
  51. MACPERAN [Concomitant]
     Active Substance: METOCLOPRAMIDE HYDROCHLORIDE
     Dosage: 1 TABLET, TID
     Route: 048
     Dates: start: 20161122, end: 20161126
  52. RINO EBASTEL [Concomitant]
     Indication: ALLERGY PROPHYLAXIS
     Dosage: 1 CAPSULE, QD
     Route: 048
     Dates: start: 20161101
  53. POTASSIUM CHLORIDE. [Concomitant]
     Active Substance: POTASSIUM CHLORIDE
     Dosage: 5 ML, BID
     Route: 042
     Dates: start: 20161122, end: 20161122
  54. POTASSIUM CHLORIDE. [Concomitant]
     Active Substance: POTASSIUM CHLORIDE
     Dosage: 5 ML, BID
     Route: 042
     Dates: start: 20161206, end: 20161206
  55. MAGNESIN (MAGNESIUM SULFATE) [Concomitant]
     Dosage: 5 ML, BID
     Route: 042
     Dates: start: 20161122, end: 20161122
  56. ALOXI [Concomitant]
     Active Substance: PALONOSETRON HYDROCHLORIDE
     Dosage: 0.25 MG, ONCE
     Route: 042
     Dates: start: 20161129, end: 20161129
  57. PLAKON [Concomitant]
     Dosage: 3 MG, ONCE; STRENGTH: 3MG/2ML
     Route: 030
     Dates: start: 20161213, end: 20161213
  58. TAGAMET [Concomitant]
     Active Substance: CIMETIDINE
     Indication: PROPHYLAXIS
     Dosage: 200 MG, ONCE; STRENGTH: 200MG/2ML
     Route: 042
     Dates: start: 20161108, end: 20161108
  59. TAGAMET [Concomitant]
     Active Substance: CIMETIDINE
     Dosage: 200 MG, ONCE; STRENGTH: 200MG/2ML
     Route: 042
     Dates: start: 20161122, end: 20161122
  60. MACPERAN [Concomitant]
     Active Substance: METOCLOPRAMIDE HYDROCHLORIDE
     Dosage: 1 TABLET, TID
     Route: 048
     Dates: start: 20161213, end: 20161217
  61. TYLENOL EXTENDED RELIEF CAPLETS [Concomitant]
     Active Substance: ACETAMINOPHEN
     Indication: CANCER PAIN
     Dosage: 1 TABLET (650 MG), TID
     Route: 048
     Dates: start: 20161108, end: 20161110
  62. POTASSIUM CHLORIDE. [Concomitant]
     Active Substance: POTASSIUM CHLORIDE
     Dosage: 5 ML, BID
     Route: 042
     Dates: start: 20161213, end: 20161213
  63. MAGNESIN (MAGNESIUM SULFATE) [Concomitant]
     Dosage: 5 ML, BID
     Route: 042
     Dates: start: 20161129, end: 20161129
  64. DEXAMETHASONE SODIUM PHOSPHATE. [Concomitant]
     Active Substance: DEXAMETHASONE SODIUM PHOSPHATE
     Dosage: 5 MG, ONCE; STRENGTH: 5MG/ML
     Route: 042
     Dates: start: 20161115, end: 20161115
  65. DEXAMETHASONE. [Concomitant]
     Active Substance: DEXAMETHASONE
     Dosage: 0.5 MG, QD
     Route: 048
     Dates: start: 20161129, end: 20161201
  66. DEXAMETHASONE. [Concomitant]
     Active Substance: DEXAMETHASONE
     Dosage: 0.5 MG, QD
     Route: 048
     Dates: start: 20161213, end: 20161215
  67. TAGAMET [Concomitant]
     Active Substance: CIMETIDINE
     Dosage: 200 MG, ONCE; STRENGTH: 200MG/2ML
     Route: 042
     Dates: start: 20161129, end: 20161129

REACTIONS (4)
  - Nausea [Recovered/Resolved]
  - Cough [Recovered/Resolved]
  - Dysphonia [Recovered/Resolved]
  - Rash [Recovered/Resolved]

NARRATIVE: CASE EVENT DATE: 20161114
